FAERS Safety Report 20820054 (Version 1)
Quarter: 2022Q2

REPORT INFORMATION
  Report Type: Spontaneous
  Country: US (occurrence: None)
  Receive Date: 20220512
  Receipt Date: 20220512
  Transmission Date: 20220721
  Serious: Yes (Life-Threatening, Hospitalization)
  Sender: FDA-Public Use
  Company Number: None

PATIENT
  Age: 71 Year
  Sex: Male

DRUGS (1)
  1. ROPIVACAINE HYDROCHLORIDE [Suspect]
     Active Substance: ROPIVACAINE HYDROCHLORIDE
     Indication: Surgery
     Dates: start: 20220207, end: 20220207

REACTIONS (12)
  - Hypotension [None]
  - Hypoxia [None]
  - Cyanosis [None]
  - Bradycardia [None]
  - Pulse absent [None]
  - Cardio-respiratory arrest [None]
  - Bronchospasm [None]
  - Anaphylactic reaction [None]
  - Asthma [None]
  - Presyncope [None]
  - Cardiogenic shock [None]
  - Overdose [None]

NARRATIVE: CASE EVENT DATE: 20220207
